FAERS Safety Report 11871147 (Version 2)
Quarter: 2016Q1

REPORT INFORMATION
  Report Type: Spontaneous
  Country: US (occurrence: US)
  Receive Date: 20151228
  Receipt Date: 20160111
  Transmission Date: 20160526
  Serious: Yes (Other)
  Sender: FDA-Public Use
  Company Number: US-BAYER-2015-490551

PATIENT
  Age: 65 Year
  Sex: Male

DRUGS (9)
  1. RISPERIDONE. [Concomitant]
     Active Substance: RISPERIDONE
     Dosage: 4 MG, BID
  2. NUEDEXTA [Suspect]
     Active Substance: DEXTROMETHORPHAN HYDROBROMIDE\QUINIDINE SULFATE
     Indication: AFFECT LABILITY
     Dosage: UNK UNK, 20/10 MG BID
  3. LORAZEPAM. [Suspect]
     Active Substance: LORAZEPAM
     Indication: PRODUCT USED FOR UNKNOWN INDICATION
     Dosage: 0.5 MG, QID
  4. LORAZEPAM. [Suspect]
     Active Substance: LORAZEPAM
     Indication: PRODUCT USED FOR UNKNOWN INDICATION
     Dosage: UNK
  5. FLUPHENAZINE [Concomitant]
     Active Substance: FLUPHENAZINE
     Dosage: 5 MG, BID
  6. CIPRO [Suspect]
     Active Substance: CIPROFLOXACIN HYDROCHLORIDE
     Indication: ORCHITIS
     Dosage: UNK
  7. NUEDEXTA [Suspect]
     Active Substance: DEXTROMETHORPHAN HYDROBROMIDE\QUINIDINE SULFATE
     Indication: AFFECT LABILITY
     Dosage: UNK UNK, QD
  8. QUETIAPINE [Concomitant]
     Active Substance: QUETIAPINE
     Dosage: QHS
  9. BENZTROPINE [Concomitant]
     Active Substance: BENZTROPINE
     Dosage: UNK

REACTIONS (4)
  - Stupor [Recovered/Resolved]
  - Decreased activity [Recovered/Resolved]
  - Speech disorder [Recovered/Resolved]
  - Catatonia [Recovered/Resolved]
